FAERS Safety Report 7069901-2 (Version None)
Quarter: 2010Q4

REPORT INFORMATION
  Report Type: 
  Country: None (occurrence: None)
  Receive Date: 20101028
  Receipt Date: 20100824
  Transmission Date: 20110411
  Serious: No
  Sender: FDA-Public Use
  Company Number: US-WYE-H16295810

PATIENT
  Sex: Female
  Weight: 71.28 kg

DRUGS (5)
  1. EFFEXOR [Suspect]
     Indication: ANXIETY
     Dates: start: 20090201, end: 20100501
  2. EFFEXOR [Suspect]
     Indication: MENOPAUSAL SYMPTOMS
  3. EFFEXOR [Suspect]
     Indication: DEPRESSION
  4. EFFEXOR [Suspect]
     Indication: AGITATION
  5. EFFEXOR [Suspect]
     Indication: HOT FLUSH

REACTIONS (1)
  - SKIN LESION [None]
